FAERS Safety Report 8150740-6 (Version None)
Quarter: 2012Q1

REPORT INFORMATION
  Report Type: 
  Country: None (occurrence: None)
  Receive Date: 20120220
  Receipt Date: 20120209
  Transmission Date: 20120608
  Serious: Yes (Hospitalization)
  Sender: FDA-Public Use
  Company Number: GB-MPIJNJ-2011-06341

PATIENT

DRUGS (8)
  1. DOXORUBICIN HCL [Suspect]
     Indication: MULTIPLE MYELOMA
     Dosage: 9 MG/M2, CYCLIC
     Route: 065
     Dates: start: 20111203
  2. DEXAMETHASONE [Suspect]
     Indication: MULTIPLE MYELOMA
     Dosage: 40 MG, CYCLIC
     Route: 065
     Dates: start: 20111203
  3. SERTRALINE HYDROCHLORIDE [Concomitant]
     Indication: DEPRESSION
     Dosage: 50 MG, UNK
     Route: 048
  4. VELCADE [Suspect]
     Indication: MULTIPLE MYELOMA
     Dosage: 1 MG/M2, CYCLIC
     Route: 065
     Dates: start: 20111203
  5. ACYCLOVIR [Concomitant]
     Dosage: 200 MG, BID
     Route: 048
     Dates: start: 20111113
  6. COTRIM [Concomitant]
     Dosage: UNK
     Route: 048
     Dates: start: 20111113
  7. RANITIDINE [Concomitant]
     Dosage: 150 MG, UNK
     Route: 048
     Dates: start: 20111113
  8. ALLOPURINOL [Concomitant]
     Dosage: 100 MG, UNK
     Route: 048
     Dates: start: 20111113

REACTIONS (1)
  - FLUID OVERLOAD [None]
